FAERS Safety Report 7110362-2 (Version None)
Quarter: 2010Q4

REPORT INFORMATION
  Report Type: 
  Country: None (occurrence: None)
  Receive Date: 20101118
  Receipt Date: 20101105
  Transmission Date: 20110411
  Serious: No
  Sender: FDA-Public Use
  Company Number: US-PFIZER INC-2010143532

PATIENT
  Sex: Female
  Weight: 70.295 kg

DRUGS (6)
  1. LYRICA [Suspect]
     Indication: ARTHRALGIA
     Dosage: 75 MG, 3X/DAY
     Dates: start: 20100101, end: 20101103
  2. LYRICA [Suspect]
     Dosage: 75 MG, 2X/DAY
     Dates: start: 20100101, end: 20100101
  3. LYRICA [Suspect]
     Dosage: 150 MG, 2X/DAY
     Dates: start: 20101019, end: 20101102
  4. FIORICET [Concomitant]
  5. EFFEXOR [Concomitant]
  6. TOPAMAX [Concomitant]

REACTIONS (5)
  - ARTHRALGIA [None]
  - DRUG INEFFECTIVE [None]
  - FEELING ABNORMAL [None]
  - NAUSEA [None]
  - PAIN [None]
